FAERS Safety Report 24923858 (Version 3)
Quarter: 2025Q3

REPORT INFORMATION
  Report Type: Spontaneous
  Country: RU (occurrence: RU)
  Receive Date: 20250204
  Receipt Date: 20250802
  Transmission Date: 20251021
  Serious: No
  Sender: ALEXION PHARMACEUTICALS
  Company Number: RU-ASTRAZENECA-202501RUS027631RU

PATIENT
  Age: 7 Year
  Sex: Male

DRUGS (4)
  1. PULMICORT TURBUHALER [Suspect]
     Active Substance: BUDESONIDE
  2. INOSINE PRANOBEX [Concomitant]
     Active Substance: INOSINE PRANOBEX
  3. MONTELUKAST [Concomitant]
     Active Substance: MONTELUKAST
  4. UNSPECIFIED INGREDIENT [Concomitant]
     Active Substance: UNSPECIFIED INGREDIENT

REACTIONS (5)
  - Off label use [Not Recovered/Not Resolved]
  - Drug ineffective for unapproved indication [Not Recovered/Not Resolved]
  - Nasal obstruction [Unknown]
  - Adenoiditis [Unknown]
  - Snoring [Unknown]
